FAERS Safety Report 13229147 (Version 2)
Quarter: 2017Q2

REPORT INFORMATION
  Report Type: Spontaneous
  Country: US (occurrence: US)
  Receive Date: 20170214
  Receipt Date: 20170508
  Transmission Date: 20170830
  Serious: Yes (Death, Hospitalization, Other)
  Sender: FDA-Public Use
  Company Number: US-AUROBINDO-AUR-APL-2017-29385

PATIENT
  Age: 61 Year
  Sex: Female

DRUGS (5)
  1. METHYLPREDNISOLONE. [Suspect]
     Active Substance: METHYLPREDNISOLONE
     Dosage: UNK, ON INCREASED DOSE
     Route: 065
  2. METHYLPREDNISOLONE. [Suspect]
     Active Substance: METHYLPREDNISOLONE
     Dosage: UNK, ON REDUCED DOSE
     Route: 065
  3. METHYLPREDNISOLONE. [Suspect]
     Active Substance: METHYLPREDNISOLONE
     Dosage: 60 MG, ONCE A DAY
     Route: 042
  4. PREDNISONE. [Suspect]
     Active Substance: PREDNISONE
     Indication: CHRONIC OBSTRUCTIVE PULMONARY DISEASE
     Dosage: 60 MG, ONCE A DAY
     Route: 048
  5. METHYLPREDNISOLONE. [Suspect]
     Active Substance: METHYLPREDNISOLONE
     Indication: CHRONIC OBSTRUCTIVE PULMONARY DISEASE
     Dosage: 60 MG, EVERY EIGHT HOURS
     Route: 042

REACTIONS (9)
  - Wheezing [Unknown]
  - Facial asymmetry [Unknown]
  - Condition aggravated [Unknown]
  - Aspergillus infection [Fatal]
  - Mucormycosis [Fatal]
  - Haemoptysis [Unknown]
  - Somnolence [Unknown]
  - Oxygen saturation decreased [Unknown]
  - Dyspnoea [Unknown]
